FAERS Safety Report 9552041 (Version 2)
Quarter: 2013Q4

REPORT INFORMATION
  Report Type: Report from Study
  Country: EE (occurrence: EE)
  Receive Date: 20130925
  Receipt Date: 20131001
  Transmission Date: 20140711
  Serious: Yes (Other)
  Sender: FDA-Public Use
  Company Number: PHHY2013EE105520

PATIENT
  Age: 47 Year
  Sex: Female

DRUGS (3)
  1. EVEROLIMUS [Suspect]
     Indication: PANCREATIC NEUROENDOCRINE TUMOUR
     Dosage: 10 MG, DAILY
     Route: 048
     Dates: start: 20120301, end: 20130621
  2. EVEROLIMUS [Suspect]
     Dosage: 5 MG, DAILY
     Route: 048
     Dates: start: 20130622
  3. NSAID^S [Concomitant]

REACTIONS (7)
  - Skin plaque [Recovered/Resolved with Sequelae]
  - Blister [Unknown]
  - Erythema [Recovered/Resolved with Sequelae]
  - Pruritus [Unknown]
  - Rash [Unknown]
  - Skin ulcer [Recovered/Resolved with Sequelae]
  - Oedema [Recovered/Resolved with Sequelae]
